FAERS Safety Report 9686220 (Version 5)
Quarter: 2014Q1

REPORT INFORMATION
  Report Type: Spontaneous
  Country: JP (occurrence: JP)
  Receive Date: 20131113
  Receipt Date: 20140225
  Transmission Date: 20141002
  Serious: Yes (Other)
  Sender: FDA-Public Use
  Company Number: PHHY2013JP127439

PATIENT
  Sex: Male
  Weight: .9 kg

DRUGS (2)
  1. APRESOLINE [Suspect]
     Route: 064
  2. METHYLDOPA [Suspect]
     Route: 064

REACTIONS (10)
  - Neonatal respiratory distress syndrome [Unknown]
  - Jaundice neonatal [Unknown]
  - Retinopathy of prematurity [Unknown]
  - Rickets [Unknown]
  - Neonatal infection [Unknown]
  - Toxic shock syndrome [Unknown]
  - Rash [Unknown]
  - Premature baby [Unknown]
  - Low birth weight baby [Unknown]
  - Foetal exposure during pregnancy [Unknown]
